FAERS Safety Report 4953956-2 (Version None)
Quarter: 2006Q1

REPORT INFORMATION
  Report Type: 
  Country: None (occurrence: None)
  Receive Date: 20060321
  Receipt Date: 20060308
  Transmission Date: 20060701
  Serious: Yes (Death)
  Sender: FDA-Public Use
  Company Number: 200610186BFR

PATIENT
  Age: 70 Year
  Sex: Female

DRUGS (13)
  1. MOXIFLOXACIN HYDROCHLORIDE [Suspect]
     Indication: SINUSITIS
     Dosage: 400 MG, QD, ORAL
     Route: 048
     Dates: start: 20060203, end: 20060209
  2. MIXTARD 20 [Concomitant]
  3. PROGRAF [Concomitant]
  4. ACTONEL [Concomitant]
  5. MEDROL [Concomitant]
  6. AMLOR [Concomitant]
  7. KARDEGIC [Concomitant]
  8. LASILIX [Concomitant]
  9. MAGNE-B6 [Concomitant]
  10. SOLU-MEDROL [Concomitant]
  11. MUCOMYST [Concomitant]
  12. NETROMYCIN [Concomitant]
  13. SILOMAT [Concomitant]

REACTIONS (1)
  - SUDDEN CARDIAC DEATH [None]
